FAERS Safety Report 16009595 (Version 1)
Quarter: 2019Q1

REPORT INFORMATION
  Report Type: Spontaneous
  Country: JP (occurrence: JP)
  Receive Date: 20190226
  Receipt Date: 20190226
  Transmission Date: 20190418
  Serious: Yes (Hospitalization)
  Sender: FDA-Public Use
  Company Number: JP-BAXTER-2019BAX001862

PATIENT
  Age: 79 Year
  Sex: Male

DRUGS (38)
  1. PREDONINE [Suspect]
     Active Substance: PREDNISOLONE
     Dosage: CHOP, 4TH CYCLE, DAY 1
     Route: 041
  2. ALOXI [Suspect]
     Active Substance: PALONOSETRON HYDROCHLORIDE
     Indication: PRODUCT USED FOR UNKNOWN INDICATION
     Route: 041
     Dates: start: 20181029
  3. ALOXI [Suspect]
     Active Substance: PALONOSETRON HYDROCHLORIDE
     Dosage: AT 11:35 A.M., DRIP INFUSION OF PALONOSETRON HYDROCHLORIDE 0.75 MG WAS ADMINISTERED
     Route: 041
     Dates: start: 20181119
  4. NORMAL SALINE [Suspect]
     Active Substance: SODIUM CHLORIDE
     Dosage: CHOP, 2ND CYCLE, AT 2:45 P.M., RECEIVED PREDNISOLONE SODIUM SUCCINATE 100 MG/DAY WITH NORMAL SALINE
     Route: 041
     Dates: start: 20181029, end: 20181029
  5. ENDOXAN 1G [Suspect]
     Active Substance: CYCLOPHOSPHAMIDE
     Indication: PERIPHERAL T-CELL LYMPHOMA UNSPECIFIED
     Dosage: 1ST CYCLE, CHOP
     Route: 041
     Dates: start: 20181005
  6. PREDONINE [Suspect]
     Active Substance: PREDNISOLONE
     Indication: PERIPHERAL T-CELL LYMPHOMA UNSPECIFIED
     Dosage: CHOP, 1ST CYCLE
     Route: 041
     Dates: start: 20181005
  7. PREDONINE [Suspect]
     Active Substance: PREDNISOLONE
     Dosage: CHOP, 3RD CYCLE, AT 3:40 P.M., ADMINISTERED PREDNISOLONE SODIUM SUCCINATE 100 MG/DAY WITH NORMAL SAL
     Route: 041
     Dates: start: 20181119, end: 20181119
  8. NORMAL SALINE [Suspect]
     Active Substance: SODIUM CHLORIDE
     Indication: MEDICATION DILUTION
     Dosage: CHOP, 2ND CYCLE, VINCRISTINE SULFATE 1 MG WITH NORMAL SALINE 50 WAS ADMINISTERED
     Route: 041
     Dates: start: 20181029, end: 20181029
  9. NI [Concomitant]
     Active Substance: UNSPECIFIED INGREDIENT
     Indication: PRODUCT USED FOR UNKNOWN INDICATION
     Route: 048
     Dates: start: 20181018
  10. ENDOXAN 1G [Suspect]
     Active Substance: CYCLOPHOSPHAMIDE
     Dosage: CHOP, 2ND CYCLE, AT 12:30 P.M., RECEIVED INCREASED DOSE OF ENDOXAN 1300 MG/DAY WITH NORMAL SALINE 50
     Route: 041
     Dates: start: 20181029, end: 20181029
  11. ENDOXAN 1G [Suspect]
     Active Substance: CYCLOPHOSPHAMIDE
     Dosage: CHOP, 4TH CYCLE
     Route: 041
  12. ADRIACIN [Suspect]
     Active Substance: DOXORUBICIN HYDROCHLORIDE
     Dosage: CHOP, 2ND CYCLE, AT 11:25 A.M., DOXORUBICIN HYDROCHLORIDE 50 MG WITH NORMAL SALINE 100 WAS ADMINISTE
     Route: 041
     Dates: start: 20181029, end: 20181029
  13. ONCOVIN [Suspect]
     Active Substance: VINCRISTINE SULFATE
     Dosage: CHOP, 2ND CYCLE, AT 11:20 A.M., VINCRISTINE SULFATE 1 MG WITH NORMAL SALINE 50 WAS ADMINISTERED
     Route: 041
     Dates: start: 20181029, end: 20181029
  14. NORMAL SALINE [Suspect]
     Active Substance: SODIUM CHLORIDE
     Dosage: CHOP, 2ND CYCLE, AT 12:30 P.M., RECEIVED INCREASED DOSE OF ENDOXAN 1300 MG/DAY WITH NORMAL SALINE 50
     Route: 041
     Dates: start: 20181029, end: 20181029
  15. NORMAL SALINE [Suspect]
     Active Substance: SODIUM CHLORIDE
     Dosage: AT 12:15 P.M., DOXORUBICIN HYDROCHLORIDE 50 MG WITH NORMAL SALINE 100 WAS ADMINISTERED (100/HOUR)
     Route: 041
     Dates: start: 20181119, end: 20181119
  16. NORMAL SALINE [Suspect]
     Active Substance: SODIUM CHLORIDE
     Dosage: CHOP, 4TH CYCLE, VINCRISTINE SULFATE 1 MG WITH NORMAL SALINE 50
     Route: 041
  17. NORMAL SALINE [Suspect]
     Active Substance: SODIUM CHLORIDE
     Dosage: CHOP, 4TH CYCLE, DOXORUBICIN HYDROCHLORIDE 50 MG WITH NORMAL SALINE 100
     Route: 041
  18. ENTECAVIR OD [Concomitant]
     Indication: GASTRIC ULCER
     Route: 048
     Dates: start: 20180914
  19. ADRIACIN [Suspect]
     Active Substance: DOXORUBICIN HYDROCHLORIDE
     Dosage: CHOP, 4TH CYCLE
     Route: 041
  20. PREDONINE [Suspect]
     Active Substance: PREDNISOLONE
     Dosage: CHOP, 2ND CYCLE, DAY 2-5
     Route: 048
     Dates: start: 20181030, end: 20181102
  21. PREDONINE [Suspect]
     Active Substance: PREDNISOLONE
     Dosage: CHOP, CYCLE 3, DAY 2-5
     Route: 048
     Dates: start: 20181120, end: 20181123
  22. PREDONINE [Suspect]
     Active Substance: PREDNISOLONE
     Dosage: CHOP, 4TH CYCLE, DAY 2-5
     Route: 048
  23. NEXIUM [Concomitant]
     Active Substance: ESOMEPRAZOLE MAGNESIUM
     Indication: HEPATITIS B
     Route: 048
     Dates: start: 20180914
  24. DIFLUCAN [Concomitant]
     Active Substance: FLUCONAZOLE
     Indication: ORAL CANDIDIASIS
     Route: 048
     Dates: start: 20180919
  25. DAIPHEN [Concomitant]
     Active Substance: SULFAMETHOXAZOLE\TRIMETHOPRIM
     Indication: PNEUMOCYSTIS JIROVECII PNEUMONIA
     Route: 048
     Dates: start: 20181002
  26. ENDOXAN 1G [Suspect]
     Active Substance: CYCLOPHOSPHAMIDE
     Dosage: CHOP, 3RD CYCLE, AT 1:30 P.M., RECEIVED ENDOXAN 1300 MG/DAY WITH NORMAL SALINE 500 (240/HOUR)
     Route: 041
     Dates: start: 20181119, end: 20181119
  27. ADRIACIN [Suspect]
     Active Substance: DOXORUBICIN HYDROCHLORIDE
     Dosage: CHOP, 3RD CYCLE, AT 12:15 P.M., DOXORUBICIN HYDROCHLORIDE 50 MG WITH NORMAL SALINE 100 WAS ADMINISTE
     Route: 041
     Dates: start: 20181119, end: 20181119
  28. ONCOVIN [Suspect]
     Active Substance: VINCRISTINE SULFATE
     Indication: PERIPHERAL T-CELL LYMPHOMA UNSPECIFIED
     Dosage: CHOP, 1ST CYCLE
     Route: 041
     Dates: start: 20181005
  29. NORMAL SALINE [Suspect]
     Active Substance: SODIUM CHLORIDE
     Dosage: AT 12:05 P.M., VINCRISTINE SULFATE 1 MG WITH NORMAL SALINE 50 WAS ADMINISTERED (5 MINUTES)
     Route: 041
     Dates: start: 20181119, end: 20181119
  30. NORMAL SALINE [Suspect]
     Active Substance: SODIUM CHLORIDE
     Dosage: AT 3:40 P.M., ADMINISTERED PREDNISOLONE SODIUM SUCCINATE 100 MG/DAY WITH NORMAL SALINE 50.
     Route: 041
     Dates: start: 20181119, end: 20181119
  31. POLAPREZINC OD [Concomitant]
     Indication: PRODUCT USED FOR UNKNOWN INDICATION
     Route: 048
     Dates: start: 20181127
  32. ADRIACIN [Suspect]
     Active Substance: DOXORUBICIN HYDROCHLORIDE
     Indication: PERIPHERAL T-CELL LYMPHOMA UNSPECIFIED
     Dosage: CHOP, 1ST CYCLE
     Route: 041
     Dates: start: 20181005
  33. ONCOVIN [Suspect]
     Active Substance: VINCRISTINE SULFATE
     Dosage: CHOP, 4TH CYCLE
     Route: 041
  34. ONCOVIN [Suspect]
     Active Substance: VINCRISTINE SULFATE
     Dosage: CHOP, 3RD CYCLE, AT 12:05 P.M., VINCRISTINE SULFATE 1 MG WITH NORMAL SALINE 50 WAS ADMINISTERED (5 M
     Route: 041
     Dates: start: 20181119, end: 20181119
  35. PREDONINE [Suspect]
     Active Substance: PREDNISOLONE
     Dosage: CHOP, 2ND CYCLE, AT 2:45 P.M., RECEIVED PREDNISOLONE SODIUM SUCCINATE 100 MG/DAY WITH NORMAL SALINE
     Route: 041
     Dates: start: 20181029, end: 20181029
  36. NORMAL SALINE [Suspect]
     Active Substance: SODIUM CHLORIDE
     Dosage: CHOP, 2ND CYCLE, AT 11:25 A.M., DOXORUBICIN HYDROCHLORIDE 50 MG WITH NORMAL SALINE 100 WAS ADMINISTE
     Route: 041
     Dates: start: 20181029, end: 20181029
  37. NORMAL SALINE [Suspect]
     Active Substance: SODIUM CHLORIDE
     Dosage: AT 1:30 P.M., RECEIVED ENDOXAN 1300 MG/DAY WITH NORMAL SALINE 500 (240/HOUR)
     Route: 041
     Dates: start: 20181119, end: 20181119
  38. NORMAL SALINE [Suspect]
     Active Substance: SODIUM CHLORIDE
     Dosage: CHOP, 4TH CYCLE, ENDOXAN 1300 MG/DAY WITH NORMAL SALINE 500
     Route: 041

REACTIONS (4)
  - Anal incontinence [Unknown]
  - Cyanosis [Unknown]
  - Hyperthermia [Recovered/Resolved]
  - Hyperthermia [Recovered/Resolved]

NARRATIVE: CASE EVENT DATE: 20181029
